FAERS Safety Report 5565043-3 (Version None)
Quarter: 2007Q4

REPORT INFORMATION
  Report Type: 
  Country: None (occurrence: None)
  Receive Date: 20071212
  Receipt Date: 20071204
  Transmission Date: 20080405
  Serious: Yes (Other)
  Sender: FDA-Public Use
  Company Number: 163-20785-06060765

PATIENT
  Age: 73 Year
  Sex: Female

DRUGS (15)
  1. THALOMID [Suspect]
     Indication: MULTIPLE MYELOMA
     Dosage: 100MG, 1 IN 1 D, ORAL
     Route: 047
     Dates: start: 20060208
  2. MELPHALAN (MELPHALAN) [Suspect]
     Indication: MULTIPLE MYELOMA
     Dosage: 4 MG/M2, X 7 DYAS
     Dates: start: 20060208, end: 20060810
  3. PREDNISONE (PREDNISONE)(TABLETS) [Concomitant]
  4. ZOCOR [Concomitant]
  5. TOPROL-XL [Concomitant]
  6. ACYCLOVIR (ACICLOVIR) (TABLETS) [Concomitant]
  7. PROTONIX (PANTOPRAZOLE) (TABLETS) [Concomitant]
  8. DIFLUCAN [Concomitant]
  9. ALKERAN [Concomitant]
  10. BACTRIM [Concomitant]
  11. ZOMETA [Concomitant]
  12. COUMADIN [Concomitant]
  13. ACETAMINOPHEN [Concomitant]
  14. DIGOXIN [Concomitant]
  15. LASIX [Concomitant]

REACTIONS (13)
  - ANAEMIA [None]
  - ATRIAL FIBRILLATION [None]
  - BONE DISORDER [None]
  - CANDIDIASIS [None]
  - DRUG INEFFECTIVE [None]
  - DYSPNOEA EXERTIONAL [None]
  - FATIGUE [None]
  - HEART RATE INCREASED [None]
  - HYPERLIPIDAEMIA [None]
  - NEUROPATHY [None]
  - PLEURAL EFFUSION [None]
  - PROTEIN TOTAL INCREASED [None]
  - PULMONARY HYPERTENSION [None]
